FAERS Safety Report 13997709 (Version 1)
Quarter: 2017Q3

REPORT INFORMATION
  Report Type: Spontaneous
  Country: US (occurrence: US)
  Receive Date: 20170921
  Receipt Date: 20170921
  Transmission Date: 20171128
  Serious: No
  Sender: FDA-Public Use
  Company Number: US-TARO-2016TAR00999

PATIENT
  Sex: Male

DRUGS (1)
  1. LIDOCAINE OINTMENT USP 5% (UNFLAVORED) [Suspect]
     Active Substance: LIDOCAINE

REACTIONS (2)
  - Accidental exposure to product [Recovered/Resolved]
  - Application site hypoaesthesia [Unknown]

NARRATIVE: CASE EVENT DATE: 20161130
